FAERS Safety Report 4582513-5 (Version None)
Quarter: 2005Q1

REPORT INFORMATION
  Report Type: 
  Country: None (occurrence: None)
  Receive Date: 20050127
  Receipt Date: 20040923
  Transmission Date: 20050727
  Serious: No
  Sender: FDA-Public Use
  Company Number: USA040979150

PATIENT
  Age: 16 Year
  Sex: Male
  Weight: 84 kg

DRUGS (7)
  1. STRATTERA [Suspect]
     Dosage: 80 MG
     Dates: start: 20040601
  2. SIBERIAN GINSENG [Concomitant]
  3. MULTI-VITAMINS [Concomitant]
  4. VITAMIN E [Concomitant]
  5. VITAMIN C [Concomitant]
  6. GLUCOSAMINE CHONDROITIN [Concomitant]
  7. METHYLSULFONYLMETHANE [Concomitant]

REACTIONS (2)
  - MYALGIA [None]
  - PAIN [None]
